FAERS Safety Report 6662328-4 (Version None)
Quarter: 2010Q1

REPORT INFORMATION
  Report Type: 
  Country: None (occurrence: None)
  Receive Date: 20100322
  Receipt Date: 20100302
  Transmission Date: 20100710
  Serious: No
  Sender: FDA-Public Use
  Company Number: 2010-00308

PATIENT
  Age: 65 Year
  Sex: Female
  Weight: 63.5036 kg

DRUGS (5)
  1. ZICAM ALLERGY RELIEF NASAL GEL [Suspect]
     Dosage: SPORADIC - 2 WEEKS : 3 WKS AGO - 1 WK AGO
  2. ZICAM ALLERGY RELIEF NASAL GEL [Suspect]
     Dosage: SPORADIC - 2 WEEKS : 3 WKS AGO - 1 WK AGO
  3. ZICAM COLD REMEDY ORAL MIST [Suspect]
     Dosage: SPORADIC - 2 WEEKS : 3 WKS AGO - 1 WK AGO
  4. ZICAM INTENSE SINUS RELIEF [Suspect]
     Dosage: SPORADIC - 2 WEEKS : 3 WKS AGO - 1 WK AGO
  5. PREMARIN [Concomitant]

REACTIONS (1)
  - ANOSMIA [None]
